FAERS Safety Report 7865429-8 (Version None)
Quarter: 2011Q4

REPORT INFORMATION
  Report Type: 
  Country: None (occurrence: None)
  Receive Date: 20111028
  Receipt Date: 20101222
  Transmission Date: 20120403
  Serious: No
  Sender: FDA-Public Use
  Company Number: US-GLAXOSMITHKLINE-A0901415A

PATIENT
  Age: 43 Year
  Sex: Male

DRUGS (6)
  1. XANAX [Concomitant]
  2. ADVAIR DISKUS 100/50 [Suspect]
     Indication: WHEEZING
     Dosage: 1PUFF TWICE PER DAY
     Route: 055
     Dates: start: 20000101
  3. ANDROGEL [Concomitant]
  4. PERCOCET [Concomitant]
  5. ZOLOFT [Concomitant]
  6. LIDODERM [Concomitant]

REACTIONS (1)
  - ORAL FUNGAL INFECTION [None]
